FAERS Safety Report 4925163-0 (Version None)
Quarter: 2006Q1

REPORT INFORMATION
  Report Type: 
  Country: None (occurrence: None)
  Receive Date: 20060228
  Receipt Date: 20051219
  Transmission Date: 20060701
  Serious: No
  Sender: FDA-Public Use
  Company Number: US-GLAXOSMITHKLINE-A0586293A

PATIENT
  Age: 81 Year
  Sex: Male

DRUGS (6)
  1. AVODART [Suspect]
     Indication: BENIGN PROSTATIC HYPERPLASIA
     Dosage: 1CAP PER DAY
     Route: 048
     Dates: start: 20050601
  2. MULTI-VITAMIN [Concomitant]
  3. ASPIRIN [Concomitant]
  4. VITAMIN E [Concomitant]
  5. LIPITOR [Concomitant]
  6. LISINOPRIL [Concomitant]

REACTIONS (1)
  - ARTHRALGIA [None]
